FAERS Safety Report 5691855-1 (Version None)
Quarter: 2008Q2

REPORT INFORMATION
  Report Type: 
  Country: None (occurrence: None)
  Receive Date: 20080402
  Receipt Date: 20080325
  Transmission Date: 20081010
  Serious: Yes (Other)
  Sender: FDA-Public Use
  Company Number: US-WYE-H00994907

PATIENT
  Age: 3 Year
  Sex: Female
  Weight: 13.17 kg

DRUGS (3)
  1. ROBITUSSIN COUGH AND COLD CF [Suspect]
     Indication: COUGH
     Dosage: 1/2 TEASPOON EVERY 6 HOURS WHEN NEEDED
     Route: 048
     Dates: start: 20070901, end: 20071001
  2. TYLENOL (CAPLET) [Suspect]
     Dosage: UNKNOWN
  3. MOTRIN [Suspect]
     Dosage: UNKNOWN

REACTIONS (2)
  - CONVULSION [None]
  - DRUG ADMINISTRATION ERROR [None]
